FAERS Safety Report 9434492 (Version 1)
Quarter: 2013Q3

REPORT INFORMATION
  Report Type: Spontaneous
  Country: US (occurrence: None)
  Receive Date: 20130731
  Receipt Date: 20130731
  Transmission Date: 20140515
  Serious: Yes (Hospitalization)
  Sender: FDA-Public Use
  Company Number: None

PATIENT
  Age: 78 Year
  Sex: Male
  Weight: 121.5 kg

DRUGS (1)
  1. CODEINE/GUAIFENESIN [Suspect]
     Indication: PAIN
     Dosage: 5 ML OTHER PO
     Route: 048
     Dates: start: 20111030, end: 20111202

REACTIONS (1)
  - Intestinal obstruction [None]
